FAERS Safety Report 5726860-X (Version None)
Quarter: 2008Q2

REPORT INFORMATION
  Report Type: 
  Country: None (occurrence: None)
  Receive Date: 20080502
  Receipt Date: 20080422
  Transmission Date: 20081010
  Serious: Yes (Life-Threatening, Hospitalization, Other)
  Sender: FDA-Public Use
  Company Number: DE-PFIZER INC-2008035878

PATIENT
  Sex: Male
  Weight: 76 kg

DRUGS (1)
  1. CHAMPIX [Suspect]
     Route: 048

REACTIONS (6)
  - ANAEMIA [None]
  - CHOLANGITIS [None]
  - INFECTION [None]
  - LIVER ABSCESS [None]
  - LOBAR PNEUMONIA [None]
  - NEOPLASM [None]
